FAERS Safety Report 9128823 (Version 1)
Quarter: 2013Q1

REPORT INFORMATION
  Report Type: Spontaneous
  Country: US (occurrence: US)
  Receive Date: 20130228
  Receipt Date: 20130228
  Transmission Date: 20140127
  Serious: No
  Sender: FDA-Public Use
  Company Number: US-ABBOTT-12P-163-1021084-00

PATIENT
  Sex: Male
  Weight: 69.46 kg

DRUGS (7)
  1. ANDROGEL [Suspect]
     Indication: BLOOD TESTOSTERONE DECREASED
     Dosage: 3 PUMPS
     Route: 061
     Dates: start: 201210
  2. ANDROGEL [Suspect]
     Dosage: 4 PUMPS
     Route: 061
     Dates: start: 2010, end: 201210
  3. NIASPAN [Concomitant]
     Indication: BLOOD CHOLESTEROL INCREASED
  4. QUESTRAN [Concomitant]
     Indication: BLOOD CHOLESTEROL INCREASED
  5. ALLERGY MEDICATION [Concomitant]
     Indication: SEASONAL ALLERGY
     Route: 050
  6. VITAMIN C [Concomitant]
     Indication: VITAMIN SUPPLEMENTATION
  7. MVI [Concomitant]
     Indication: VITAMIN SUPPLEMENTATION

REACTIONS (1)
  - Weight decreased [Not Recovered/Not Resolved]
